FAERS Safety Report 19208213 (Version 1)
Quarter: 2021Q2

REPORT INFORMATION
  Report Type: Report from Study
  Country: GB (occurrence: GB)
  Receive Date: 20210503
  Receipt Date: 20210503
  Transmission Date: 20210717
  Serious: Yes (Hospitalization, Other)
  Sender: FDA-Public Use
  Company Number: GB-GLAXOSMITHKLINE-GB2020GSK179506

PATIENT
  Age: 68 Year
  Sex: Female
  Weight: 62.2 kg

DRUGS (16)
  1. DOCETAXEL. [Concomitant]
     Active Substance: DOCETAXEL
     Indication: OVARIAN CANCER
     Route: 042
  2. DOCUSATE SODIUM. [Concomitant]
     Active Substance: DOCUSATE SODIUM
     Dosage: 20 MG
     Route: 048
     Dates: start: 20200824
  3. DAKTACORT CREAM [Concomitant]
     Indication: TINEA PEDIS
     Dosage: 1 DF, Z?OD
     Dates: start: 20200824
  4. CARBOPLATIN. [Suspect]
     Active Substance: CARBOPLATIN
     Indication: OVARIAN CANCER
     Dosage: 5 AUC
     Route: 042
     Dates: start: 20200123, end: 20200123
  5. PACLITAXEL. [Suspect]
     Active Substance: PACLITAXEL
     Dosage: 240 MG
     Route: 042
     Dates: start: 20200623, end: 20200623
  6. LANSOPRAZOLE. [Concomitant]
     Active Substance: LANSOPRAZOLE
     Indication: PROPHYLAXIS
     Dosage: 30 MG, BID
     Route: 048
     Dates: start: 20200903
  7. CISPLATIN. [Concomitant]
     Active Substance: CISPLATIN
     Indication: OVARIAN CANCER
     Route: 042
  8. CARBOPLATIN. [Suspect]
     Active Substance: CARBOPLATIN
     Dosage: 450 AUC
     Route: 042
     Dates: start: 20200714, end: 20200714
  9. DOCUSATE SODIUM. [Concomitant]
     Active Substance: DOCUSATE SODIUM
     Indication: CONSTIPATION
     Dosage: 200 MG, TID
     Route: 048
     Dates: start: 20200819, end: 20201102
  10. NIRAPARIB [Suspect]
     Active Substance: NIRAPARIB
     Indication: OVARIAN CANCER
     Dosage: 200 MG
     Dates: start: 20200804, end: 20200902
  11. DOSTARLIMAB [Suspect]
     Active Substance: DOSTARLIMAB
     Indication: OVARIAN CANCER
     Dosage: 500 MG
     Dates: start: 20200214, end: 20200214
  12. BEVACIZUMAB. [Suspect]
     Active Substance: BEVACIZUMAB
     Indication: OVARIAN CANCER
     Route: 042
  13. BETAMETASONE [Concomitant]
     Active Substance: BETAMETHASONE
     Indication: ASTHMA
     Dosage: 50 UG
     Route: 055
     Dates: start: 20100101
  14. DOSTARLIMAB [Suspect]
     Active Substance: DOSTARLIMAB
     Dosage: 1000 MG
     Dates: start: 20200804, end: 20200804
  15. PACLITAXEL. [Suspect]
     Active Substance: PACLITAXEL
     Indication: OVARIAN CANCER
     Dosage: 175 MG
     Route: 042
     Dates: start: 20200123, end: 20200123
  16. MACROGOL [Concomitant]
     Active Substance: POLYETHYLENE GLYCOLS
     Indication: CONSTIPATION
     Dosage: 1 DF
     Route: 048
     Dates: start: 20200824

REACTIONS (2)
  - Suspected COVID-19 [Recovered/Resolved]
  - Aspartate aminotransferase increased [Recovered/Resolved]

NARRATIVE: CASE EVENT DATE: 20200903
